FAERS Safety Report 5494097-8 (Version None)
Quarter: 2007Q4

REPORT INFORMATION
  Report Type: 
  Country: None (occurrence: None)
  Receive Date: 20071022
  Receipt Date: 20071008
  Transmission Date: 20080405
  Serious: Yes (Other)
  Sender: FDA-Public Use
  Company Number: 2007332813

PATIENT
  Age: 68 Year
  Sex: Male
  Weight: 72.5755 kg

DRUGS (8)
  1. BENGAY PATCH UNSPECIFIED (MENTHOL) [Suspect]
     Indication: MUSCLE SPASMS
     Dosage: 1 PATCH, 1 TIME, TOPICAL
     Route: 061
     Dates: start: 20070929, end: 20070929
  2. HYDROGEN PEROXIDE (HYDROGEN PEROXIDE) [Suspect]
     Dosage: UNSPECIFIED, TOPICAL
     Route: 061
     Dates: start: 20070929, end: 20070929
  3. DRUG, UNSPECIFIED (DRUG, UNSPECIFIED) [Suspect]
     Dosage: UNSPECIFIED, TOPICAL
     Route: 061
     Dates: start: 20070929, end: 20070929
  4. VALSARTAN [Concomitant]
  5. ASPIRIN [Concomitant]
  6. METOPROLOL TARTRATE [Concomitant]
  7. NIACIN [Concomitant]
  8. HYDROCHLOROTHIAZIDE [Concomitant]

REACTIONS (4)
  - APPLICATION SITE ERYTHEMA [None]
  - APPLICATION SITE EXFOLIATION [None]
  - APPLICATION SITE VESICLES [None]
  - OPEN WOUND [None]
